FAERS Safety Report 7493648-1 (Version None)
Quarter: 2011Q2

REPORT INFORMATION
  Report Type: 
  Country: None (occurrence: None)
  Receive Date: 20110519
  Receipt Date: 20110519
  Transmission Date: 20111010
  Serious: Yes (Hospitalization)
  Sender: FDA-Public Use
  Company Number: None

PATIENT
  Age: 62 Year
  Sex: Male
  Weight: 73.6 kg

DRUGS (1)
  1. ROPINIROLE [Suspect]
     Indication: RESTLESS LEGS SYNDROME
     Dosage: 4 MG BID PO
     Route: 048
     Dates: start: 20081022

REACTIONS (4)
  - INSOMNIA [None]
  - GAMBLING [None]
  - SYNCOPE [None]
  - ORTHOSTATIC HYPOTENSION [None]
